FAERS Safety Report 15335154 (Version 3)
Quarter: 2019Q2

REPORT INFORMATION
  Report Type: Report from Study
  Country: US (occurrence: US)
  Receive Date: 20180830
  Receipt Date: 20190514
  Transmission Date: 20190711
  Serious: No
  Sender: FDA-Public Use
  Company Number: PHEH2018US036279

PATIENT
  Sex: Female

DRUGS (1)
  1. AFINITOR DISPERZ [Suspect]
     Active Substance: EVEROLIMUS
     Indication: ASTROCYTOMA, LOW GRADE
     Dosage: 3 MG, UNK (EVERY OTHER DAY ALTERNATING WITH 5 MG)
     Route: 048
     Dates: start: 20140703

REACTIONS (2)
  - Epistaxis [Not Recovered/Not Resolved]
  - Malaise [Not Recovered/Not Resolved]
